FAERS Safety Report 5577389-3 (Version None)
Quarter: 2007Q4

REPORT INFORMATION
  Report Type: 
  Country: None (occurrence: None)
  Receive Date: 20071228
  Receipt Date: 20071218
  Transmission Date: 20080405
  Serious: Yes (Hospitalization, Other)
  Sender: FDA-Public Use
  Company Number: US-PFIZER INC-2007097867

PATIENT
  Sex: Female
  Weight: 113 kg

DRUGS (1)
  1. GENOTROPIN [Suspect]
     Indication: GROWTH HORMONE DEFICIENCY
     Dosage: DAILY DOSE:.4MG

REACTIONS (4)
  - CATARACT [None]
  - LUMBAR HERNIA [None]
  - LUMBAR SPINAL STENOSIS [None]
  - MALIGNANT MELANOMA [None]
